FAERS Safety Report 8738463 (Version 2)
Quarter: 2012Q4

REPORT INFORMATION
  Report Type: Report from Study
  Country: US (occurrence: US)
  Receive Date: 20120823
  Receipt Date: 20120831
  Transmission Date: 20130627
  Serious: Yes (Life-Threatening, Other)
  Sender: FDA-Public Use
  Company Number: US-JNJFOC-20120807781

PATIENT
  Age: 77 None
  Sex: Female
  Weight: 77.11 kg

DRUGS (8)
  1. XARELTO [Suspect]
     Indication: CEREBROVASCULAR ACCIDENT PROPHYLAXIS
     Route: 048
     Dates: start: 20120813
  2. XARELTO [Suspect]
     Indication: ATRIAL FIBRILLATION
     Route: 048
     Dates: start: 20120813
  3. ZETIA [Concomitant]
     Indication: BLOOD CHOLESTEROL
     Route: 048
     Dates: start: 2010
  4. LIPITOR [Concomitant]
     Indication: BLOOD PRESSURE
     Route: 048
     Dates: start: 2010
  5. LOTREL [Concomitant]
     Indication: BLOOD PRESSURE
     Route: 048
     Dates: start: 2007
  6. METOPROLOL [Concomitant]
     Indication: HYPERTENSION
     Route: 048
  7. SOTALOL [Concomitant]
     Indication: ATRIAL FIBRILLATION
     Route: 048
     Dates: start: 20120812
  8. SYNTHROID [Concomitant]
     Indication: THYROID DISORDER
     Route: 048
     Dates: start: 2010

REACTIONS (3)
  - Chromaturia [Recovered/Resolved]
  - Blood urine present [Recovered/Resolved]
  - Pruritus [Not Recovered/Not Resolved]
